FAERS Safety Report 12693672 (Version 1)
Quarter: 2016Q3

REPORT INFORMATION
  Report Type: Spontaneous
  Country: GB (occurrence: GB)
  Receive Date: 20160829
  Receipt Date: 20160829
  Transmission Date: 20161109
  Serious: Yes (Death)
  Sender: FDA-Public Use
  Company Number: GB-BAXTER-2016BAX042260

PATIENT
  Sex: Female
  Weight: 47 kg

DRUGS (1)
  1. DIANEAL [Suspect]
     Active Substance: CALCIUM CHLORIDE\DEXTROSE\MAGNESIUM CHLORIDE\SODIUM CHLORIDE\SODIUM LACTATE
     Indication: PERITONEAL DIALYSIS
     Route: 033
     Dates: start: 20121030, end: 20160806

REACTIONS (4)
  - Rheumatoid arthritis [Fatal]
  - Cardiovascular disorder [Fatal]
  - Amyloidosis [Fatal]
  - End stage renal disease [Fatal]
